FAERS Safety Report 4986002-5 (Version None)
Quarter: 2006Q1

REPORT INFORMATION
  Report Type: 
  Country: None (occurrence: None)
  Receive Date: 20060321
  Receipt Date: 20060316
  Transmission Date: 20060701
  Serious: Yes (Other)
  Sender: FDA-Public Use
  Company Number: 2006BH005841

PATIENT
  Age: 47 Year
  Sex: Male

DRUGS (1)
  1. POLYGAM S/D [Suspect]
     Indication: HYPOGAMMAGLOBULINAEMIA
     Dosage: 50 GM; EVERY MO; IV
     Route: 042

REACTIONS (1)
  - PANCREATITIS ACUTE [None]
